FAERS Safety Report 5451688-8 (Version None)
Quarter: 2007Q3

REPORT INFORMATION
  Report Type: 
  Country: None (occurrence: None)
  Receive Date: 20070803
  Receipt Date: 20070504
  Transmission Date: 20080115
  Serious: Yes (Other)
  Sender: FDA-Public Use
  Company Number: 36808

PATIENT
  Age: 55 Year
  Sex: Female
  Weight: 54.4316 kg

DRUGS (3)
  1. PROPOFOL [Suspect]
     Indication: ANAESTHESIA
     Dosage: 160MG/OVER 5 MIN/IV
     Route: 042
     Dates: start: 20070426
  2. NEXIUM [Concomitant]
  3. OMACUN [Concomitant]

REACTIONS (3)
  - CHILLS [None]
  - PAIN [None]
  - PYREXIA [None]
